FAERS Safety Report 6621103-7 (Version None)
Quarter: 2010Q1

REPORT INFORMATION
  Report Type: 
  Country: None (occurrence: None)
  Receive Date: 20100223
  Receipt Date: 20100120
  Transmission Date: 20100710
  Serious: No
  Sender: FDA-Public Use
  Company Number: 8050392

PATIENT
  Sex: Female
  Weight: 88.9 kg

DRUGS (2)
  1. CERTOLIZUMAB PEGOL [Suspect]
     Indication: CROHN'S DISEASE
     Dosage: SUBCUTANEOUS, SUBCUTANEOUS
     Route: 058
     Dates: start: 20090716, end: 20091001
  2. CERTOLIZUMAB PEGOL [Suspect]
     Indication: CROHN'S DISEASE
     Dosage: SUBCUTANEOUS, SUBCUTANEOUS
     Route: 058
     Dates: start: 20091001

REACTIONS (9)
  - BRONCHITIS [None]
  - CHEST PAIN [None]
  - CHILLS [None]
  - PAIN [None]
  - PARAESTHESIA [None]
  - PYREXIA [None]
  - SINUSITIS [None]
  - TREMOR [None]
  - VITAMIN B12 DECREASED [None]
